FAERS Safety Report 21939817 (Version 1)
Quarter: 2023Q1

REPORT INFORMATION
  Report Type: Report from Study
  Country: US (occurrence: US)
  Receive Date: 20230201
  Receipt Date: 20230201
  Transmission Date: 20230417
  Serious: Yes (Other)
  Sender: FDA-Public Use
  Company Number: US-EXELIXIS-CABO-22058020

PATIENT
  Sex: Male

DRUGS (1)
  1. CABOMETYX [Suspect]
     Active Substance: CABOZANTINIB S-MALATE
     Indication: Renal cancer
     Dosage: 60 MG, QD
     Route: 048

REACTIONS (15)
  - Blood pressure increased [Unknown]
  - Flatulence [Unknown]
  - Blister [Recovering/Resolving]
  - Erythema [Unknown]
  - Skin fissures [Unknown]
  - Throat irritation [Unknown]
  - Dyspepsia [Unknown]
  - Diarrhoea [Recovering/Resolving]
  - Dry mouth [Unknown]
  - Dry skin [Unknown]
  - Nausea [Recovered/Resolved]
  - Fatigue [Unknown]
  - Stomatitis [Unknown]
  - Eczema [Recovering/Resolving]
  - Psoriasis [Recovering/Resolving]
